FAERS Safety Report 7874254-3 (Version None)
Quarter: 2011Q3

REPORT INFORMATION
  Report Type: 
  Country: None (occurrence: None)
  Receive Date: 20110926
  Receipt Date: 20100923
  Transmission Date: 20111222
  Serious: Yes (Other)
  Sender: FDA-Public Use
  Company Number: 705477

PATIENT
  Age: 56 Year
  Sex: Female
  Weight: 113.64 kg

DRUGS (1)
  1. CARBOPLATIN [Suspect]
     Indication: OVARIAN CANCER
     Dosage: 408 MG, Q21 DAYS, INTRAVENOUS DRIP
     Route: 041
     Dates: start: 20100922, end: 20100922

REACTIONS (1)
  - ANAPHYLACTIC REACTION [None]
